FAERS Safety Report 10345781 (Version 4)
Quarter: 2014Q3

REPORT INFORMATION
  Report Type: Report from Study
  Country: JP (occurrence: JP)
  Receive Date: 20140728
  Receipt Date: 20140904
  Transmission Date: 20150326
  Serious: Yes (Death)
  Sender: FDA-Public Use
  Company Number: JP-009507513-1407JPN011846

PATIENT
  Age: 65 Year
  Sex: Male
  Weight: 71.1 kg

DRUGS (7)
  1. AMLODIN (AMLODIPINE BESYLATE) [Concomitant]
     Active Substance: AMLODIPINE BESYLATE
     Indication: HYPERTENSION
     Dosage: 5 MG, QD; DIVIDED DOSE FREQUENCY UNKNOWN
     Route: 048
  2. SUGLAT [Suspect]
     Active Substance: IPRAGLIFLOZIN L-PROLINE
     Indication: TYPE 2 DIABETES MELLITUS
     Dosage: 25 MG, QD; DIVIDED DOSE FREQUENCY UNKNOWN
     Route: 048
     Dates: start: 20140618, end: 20140717
  3. CRESTOR [Concomitant]
     Active Substance: ROSUVASTATIN CALCIUM
     Indication: DYSLIPIDAEMIA
     Dosage: 5 MG, QD; DIVIDED DOSE FREQUENCY UNKNOWN
     Route: 048
  4. JANUVIA [Suspect]
     Active Substance: SITAGLIPTIN PHOSPHATE
     Indication: TYPE 2 DIABETES MELLITUS
     Dosage: 50 MG, QD; DIVIDED DOSE FREQYENCY UNKNOWN
     Route: 048
  5. EUGLUCON [Suspect]
     Active Substance: GLYBURIDE
     Indication: TYPE 2 DIABETES MELLITUS
     Dosage: 5 MG, QD; DIVIDED DOSE FREQUENCY UNKNOWN
     Route: 048
  6. GASTER [Concomitant]
     Active Substance: FAMOTIDINE
     Indication: GASTRIC ULCER
     Dosage: 40 MG, QD; DIVIDED DOSE FREQUENCY UNKNOWN
     Route: 048
  7. ACTOS [Concomitant]
     Active Substance: PIOGLITAZONE HYDROCHLORIDE
     Indication: TYPE 2 DIABETES MELLITUS
     Dosage: 30 MG, QD
     Route: 048

REACTIONS (7)
  - Blood glucose abnormal [Unknown]
  - Blood glucose decreased [Unknown]
  - Palpitations [Not Recovered/Not Resolved]
  - Cold sweat [Not Recovered/Not Resolved]
  - Death [Fatal]
  - Chest pain [Not Recovered/Not Resolved]
  - Pyrexia [Not Recovered/Not Resolved]

NARRATIVE: CASE EVENT DATE: 2014
